FAERS Safety Report 5468093-0 (Version None)
Quarter: 2007Q3

REPORT INFORMATION
  Report Type: 
  Country: None (occurrence: None)
  Receive Date: 20070913
  Receipt Date: 20070904
  Transmission Date: 20080115
  Serious: Yes (Other)
  Sender: FDA-Public Use
  Company Number: M2007-014

PATIENT
  Age: 53 Year
  Sex: Female

DRUGS (1)
  1. PATIENT MIXTURE M2007-014-1 STD GLY 1-10,000 DR. WILSON [Suspect]
     Indication: HYPERSENSITIVITY
     Dosage: 0.3 ML WEEKLY INJECTION
     Dates: start: 20050108, end: 20050708

REACTIONS (3)
  - AMYOTROPHIC LATERAL SCLEROSIS [None]
  - NEUROLOGICAL SYMPTOM [None]
  - PERONEAL NERVE PALSY [None]
